FAERS Safety Report 7225935-6 (Version None)
Quarter: 2011Q1

REPORT INFORMATION
  Report Type: 
  Country: None (occurrence: None)
  Receive Date: 20110113
  Receipt Date: 20110111
  Transmission Date: 20110831
  Serious: Yes (Death, Hospitalization, Other)
  Sender: FDA-Public Use
  Company Number: FR-PFIZER INC-2011006477

PATIENT
  Age: 76 Year
  Sex: Male
  Weight: 150 kg

DRUGS (8)
  1. ASPIRIN [Concomitant]
     Dosage: 75 MG, 1X/DAY
     Route: 048
     Dates: end: 20101124
  2. LASIX [Concomitant]
  3. POTASSIUM CHLORIDE [Concomitant]
     Dosage: 1000 MG
  4. CARDENSIEL [Concomitant]
     Dosage: 5 MG
  5. TAHOR [Suspect]
     Dosage: 20 MG, 1X/DAY
     Route: 048
     Dates: end: 20101124
  6. PREVISCAN [Suspect]
     Indication: ATRIAL FIBRILLATION
     Dosage: UNK
     Route: 048
     Dates: end: 20101124
  7. DIAMICRON [Concomitant]
     Dosage: 30 MG, 2X/DAY
  8. LEVOTHYROX [Concomitant]

REACTIONS (3)
  - INTERNATIONAL NORMALISED RATIO INCREASED [None]
  - HAEMORRHAGIC STROKE [None]
  - COMA [None]
